FAERS Safety Report 5226097-7 (Version None)
Quarter: 2007Q1

REPORT INFORMATION
  Report Type: 
  Country: None (occurrence: None)
  Receive Date: 20070201
  Receipt Date: 20070122
  Transmission Date: 20070707
  Serious: Yes (Death)
  Sender: FDA-Public Use
  Company Number: HQWYE342124JAN07

PATIENT
  Sex: Female
  Weight: 44.5 kg

DRUGS (5)
  1. GEMTUZUMAB OZOGAMICIN [Suspect]
     Indication: ACUTE MYELOID LEUKAEMIA
     Dosage: 2.6 MG GIVEN AT LAST ADMINISTRATION; CUMULATIVE DOSE 14.3 MG AFTER ONE CYCLE
     Route: 065
     Dates: start: 20060912, end: 20061222
  2. ULTRA K [Concomitant]
     Dosage: 2X15 ML DAILY
     Route: 065
     Dates: start: 20060101
  3. SERPEN [Concomitant]
     Route: 065
  4. CORDARONE [Concomitant]
     Indication: ATRIAL FIBRILLATION
     Route: 065
     Dates: start: 20060906
  5. MEDROL [Concomitant]
     Route: 065

REACTIONS (1)
  - DEATH [None]
